FAERS Safety Report 17933324 (Version 3)
Quarter: 2020Q3

REPORT INFORMATION
  Report Type: Report from Study
  Country: CO (occurrence: CO)
  Receive Date: 20200623
  Receipt Date: 20200807
  Transmission Date: 20201103
  Serious: Yes (Other)
  Sender: FDA-Public Use
  Company Number: NVSC2020CO134609

PATIENT
  Age: 61 Year
  Sex: Female

DRUGS (3)
  1. REVOLADE [Suspect]
     Active Substance: ELTROMBOPAG
     Indication: IMMUNE THROMBOCYTOPENIA
     Dosage: 25 MG, Q12H
     Route: 048
  2. REVOLADE [Suspect]
     Active Substance: ELTROMBOPAG
     Dosage: 50 MG, QD
     Route: 048
  3. TRAUMEEL S [Suspect]
     Active Substance: HOMEOPATHICS
     Indication: INFLAMMATION
     Dosage: UNK
     Route: 065

REACTIONS (10)
  - Radius fracture [Unknown]
  - Headache [Unknown]
  - Product dose omission issue [Unknown]
  - Pain [Unknown]
  - Inflammation [Recovering/Resolving]
  - Hand fracture [Unknown]
  - Blister [Unknown]
  - Bloody discharge [Unknown]
  - Accident [Unknown]
  - Peripheral swelling [Recovering/Resolving]

NARRATIVE: CASE EVENT DATE: 20200507
